FAERS Safety Report 6045953-3 (Version None)
Quarter: 2009Q1

REPORT INFORMATION
  Report Type: 
  Country: None (occurrence: None)
  Receive Date: 20090116
  Receipt Date: 20090105
  Transmission Date: 20090719
  Serious: Yes (Death, Life-Threatening, Hospitalization)
  Sender: FDA-Public Use
  Company Number: 1000000722

PATIENT
  Age: 42 Year
  Sex: Female
  Weight: 80 kg

DRUGS (7)
  1. CITALOPRAM HYDROBROMIDE [Suspect]
     Dosage: 20 MG (20 MG, 1 IN 1 D) ,ORAL
     Route: 048
     Dates: start: 20070101, end: 20080101
  2. CLOZAPINE [Suspect]
     Indication: SCHIZOPHRENIA
     Dosage: 400 MG (400 MG, 1 IN 1 D) ,ORAL
     Route: 048
     Dates: start: 20070101, end: 20080101
  3. CLOZAPINE [Suspect]
     Indication: SCHIZOPHRENIA
     Dosage: 25 MG (12.5 MG, 2 IN 1 D) ,ORAL
     Route: 048
     Dates: start: 20070101, end: 20070101
  4. ACETAMINOPHEN [Concomitant]
  5. LOXAPINE (INJECTION) [Concomitant]
  6. RISPERIDONE [Concomitant]
  7. VITAMIN K [Concomitant]

REACTIONS (16)
  - ACUTE HEPATIC FAILURE [None]
  - ANTIPSYCHOTIC DRUG LEVEL INCREASED [None]
  - ASCITES [None]
  - BLOOD CHLORIDE INCREASED [None]
  - BLOOD CREATININE INCREASED [None]
  - BLOOD UREA INCREASED [None]
  - CLOSTRIDIUM DIFFICILE SEPSIS [None]
  - COAGULOPATHY [None]
  - HEPATIC ENCEPHALOPATHY [None]
  - HEPATIC NECROSIS [None]
  - HYPERNATRAEMIA [None]
  - MULTI-ORGAN FAILURE [None]
  - NEUTROPHIL COUNT DECREASED [None]
  - RESPIRATORY DISTRESS [None]
  - SHOCK [None]
  - THROMBOCYTOPENIA [None]
